FAERS Safety Report 20020397 (Version 1)
Quarter: 2021Q4

REPORT INFORMATION
  Report Type: Spontaneous
  Country: CN (occurrence: CN)
  Receive Date: 20211101
  Receipt Date: 20211101
  Transmission Date: 20220303
  Serious: Yes (Life-Threatening, Hospitalization)
  Sender: FDA-Public Use
  Company Number: CN-BAYER-2021A238475

PATIENT
  Age: 35 Year
  Sex: Female
  Weight: 45 kg

DRUGS (1)
  1. AVELOX [Suspect]
     Active Substance: MOXIFLOXACIN HYDROCHLORIDE
     Indication: Anti-infective therapy
     Dosage: 0.4 G, QD
     Route: 048
     Dates: start: 20210915, end: 20210915

REACTIONS (8)
  - Nausea [Unknown]
  - Headache [Not Recovered/Not Resolved]
  - Gastrointestinal disorder [None]
  - Vomiting [Unknown]
  - Vertigo [Not Recovered/Not Resolved]
  - Syncope [Unknown]
  - Contusion [None]
  - Blood pressure systolic decreased [None]

NARRATIVE: CASE EVENT DATE: 20210915
